FAERS Safety Report 10788481 (Version 1)
Quarter: 2015Q1

REPORT INFORMATION
  Report Type: Spontaneous
  Country: US (occurrence: US)
  Receive Date: 20150212
  Receipt Date: 20150212
  Transmission Date: 20150721
  Serious: Yes (Hospitalization)
  Sender: FDA-Public Use
  Company Number: US-PFIZER INC-2015050355

PATIENT
  Age: 51 Year
  Sex: Male

DRUGS (2)
  1. MIRACLE MOUTHWASH [Concomitant]
     Dosage: UNK
  2. DOXYCYCLINE HYCLATE. [Suspect]
     Active Substance: DOXYCYCLINE HYCLATE
     Indication: LYME DISEASE
     Dosage: 100 MG, 2X/DAY

REACTIONS (1)
  - Pancreatitis acute [Recovered/Resolved]
